FAERS Safety Report 16792722 (Version 4)
Quarter: 2021Q1

REPORT INFORMATION
  Report Type: Spontaneous
  Country: CZ (occurrence: SK)
  Receive Date: 20190910
  Receipt Date: 20210315
  Transmission Date: 20210419
  Serious: Yes (Death, Hospitalization, Other)
  Sender: FDA-Public Use
  Company Number: PHHY2019CZ208228

PATIENT
  Age: 57 Year
  Sex: Male

DRUGS (13)
  1. PREDNISONE. [Suspect]
     Active Substance: PREDNISONE
     Dosage: UNK
     Route: 065
     Dates: start: 201504
  2. CYCLOSPORINE. [Suspect]
     Active Substance: CYCLOSPORINE
     Indication: SYSTEMIC LUPUS ERYTHEMATOSUS
     Dosage: UNK
     Route: 065
     Dates: start: 2002
  3. PREDNISONE. [Suspect]
     Active Substance: PREDNISONE
     Indication: SYSTEMIC LUPUS ERYTHEMATOSUS
     Dosage: UNK
     Route: 065
     Dates: start: 2002
  4. CELLCEPT [Suspect]
     Active Substance: MYCOPHENOLATE MOFETIL\MYCOPHENOLATE MOFETIL HYDROCHLORIDE
     Indication: SYSTEMIC LUPUS ERYTHEMATOSUS
     Dosage: UNK, QD
     Route: 048
     Dates: start: 2010
  5. MYCOPHENOLATE MOFETIL. [Suspect]
     Active Substance: MYCOPHENOLATE MOFETIL
     Indication: SYSTEMIC LUPUS ERYTHEMATOSUS
     Dosage: UNK
     Route: 065
     Dates: start: 2002
  6. CYCLOPHOSPHAMIDE. [Suspect]
     Active Substance: CYCLOPHOSPHAMIDE
     Indication: SYSTEMIC LUPUS ERYTHEMATOSUS
     Dosage: UNK
     Route: 065
     Dates: start: 2002
  7. METHOTREXATE. [Suspect]
     Active Substance: METHOTREXATE
     Indication: SYSTEMIC LUPUS ERYTHEMATOSUS
     Dosage: UNK
     Route: 065
     Dates: start: 2002
  8. PREDNISONE. [Suspect]
     Active Substance: PREDNISONE
     Dosage: 15?20 MG
     Route: 065
     Dates: start: 2003, end: 2014
  9. BENLYSTA [Suspect]
     Active Substance: BELIMUMAB
     Dosage: UNK
     Route: 065
     Dates: start: 201504
  10. AZATHIOPRINE. [Suspect]
     Active Substance: AZATHIOPRINE
     Indication: SYSTEMIC LUPUS ERYTHEMATOSUS
     Dosage: UNK
     Route: 065
     Dates: start: 2002
  11. PLAQUENIL [Suspect]
     Active Substance: HYDROXYCHLOROQUINE SULFATE
     Indication: SYSTEMIC LUPUS ERYTHEMATOSUS
     Dosage: UNK
     Route: 065
     Dates: start: 2002
  12. PREDNISONE. [Suspect]
     Active Substance: PREDNISONE
     Dosage: 12.5 MG, QD
     Route: 065
     Dates: start: 2014, end: 20160301
  13. BENLYSTA [Suspect]
     Active Substance: BELIMUMAB
     Indication: SYSTEMIC LUPUS ERYTHEMATOSUS
     Dosage: 840 MG, Q4W
     Route: 042
     Dates: start: 20140401, end: 20151103

REACTIONS (22)
  - Cardiac arrest [Fatal]
  - Lymphopenia [Fatal]
  - Progressive bulbar palsy [Fatal]
  - Pneumonia [Fatal]
  - Magnetic resonance imaging brain abnormal [Fatal]
  - Quadriparesis [Not Recovered/Not Resolved]
  - Dysarthria [Not Recovered/Not Resolved]
  - Speech disorder [Fatal]
  - Dizziness [Fatal]
  - CD4 lymphocytes decreased [Fatal]
  - Cerebrovascular accident [Not Recovered/Not Resolved]
  - Brain stem syndrome [Fatal]
  - JC virus infection [Not Recovered/Not Resolved]
  - Cerebral infarction [Fatal]
  - Limb discomfort [Fatal]
  - Arrhythmia [Fatal]
  - Hypotension [Fatal]
  - Hemiparesis [Not Recovered/Not Resolved]
  - Mental disorder [Fatal]
  - Progressive multifocal leukoencephalopathy [Fatal]
  - Respiratory failure [Fatal]
  - Mental impairment [Not Recovered/Not Resolved]

NARRATIVE: CASE EVENT DATE: 201511
